FAERS Safety Report 9386006 (Version 1)
Quarter: 2013Q3

REPORT INFORMATION
  Report Type: Spontaneous
  Country: US (occurrence: US)
  Receive Date: 20130705
  Receipt Date: 20130705
  Transmission Date: 20140515
  Serious: Yes (Other)
  Sender: FDA-Public Use
  Company Number: US-ABBOTT-13P-163-1111938-00

PATIENT
  Sex: Female
  Weight: 74.91 kg

DRUGS (2)
  1. SYNTHROID [Suspect]
     Indication: AUTOIMMUNE THYROIDITIS
  2. SYNTHROID [Suspect]
     Indication: THYROID FUNCTION TEST ABNORMAL

REACTIONS (9)
  - Depression [Unknown]
  - Alopecia [Unknown]
  - Cold sweat [Unknown]
  - Pyrexia [Unknown]
  - Headache [Unknown]
  - Lethargy [Unknown]
  - Weight increased [Unknown]
  - Heart rate increased [Unknown]
  - Drug ineffective [Unknown]
